FAERS Safety Report 9405144 (Version 1)
Quarter: 2013Q3

REPORT INFORMATION
  Report Type: Spontaneous
  Country: KR (occurrence: KR)
  Receive Date: 20130717
  Receipt Date: 20130717
  Transmission Date: 20140515
  Serious: Yes (Hospitalization, Other)
  Sender: FDA-Public Use
  Company Number: KR-ASTRAZENECA-2013SE51877

PATIENT
  Sex: Male
  Weight: 2.6 kg

DRUGS (1)
  1. ATACAND [Suspect]
     Indication: HYPERTENSION
     Route: 064

REACTIONS (1)
  - Renal failure acute [Recovered/Resolved]
